FAERS Safety Report 12336138 (Version 1)
Quarter: 2016Q2

REPORT INFORMATION
  Report Type: Spontaneous
  Country: None (occurrence: None)
  Receive Date: 20160504
  Receipt Date: 20160504
  Transmission Date: 20160815
  Serious: Yes (Life-Threatening)
  Sender: FDA-Public Use
  Company Number: None

PATIENT
  Age: 48 Year
  Sex: Female

DRUGS (3)
  1. MOTIVEST (FLUOXETINE) 20MG, 20 MG [Suspect]
     Active Substance: FLUOXETINE HYDROCHLORIDE
     Indication: PANIC DISORDER
     Route: 048
  2. ZIPROC (CLOZAPINE) [Concomitant]
  3. MOTIVEST (FLUOXETINE) 20MG, 20 MG [Suspect]
     Active Substance: FLUOXETINE HYDROCHLORIDE
     Indication: PREMENSTRUAL DYSPHORIC DISORDER
     Route: 048

REACTIONS (3)
  - Drug ineffective [None]
  - Menorrhagia [None]
  - Anxiety [None]

NARRATIVE: CASE EVENT DATE: 20151213
